FAERS Safety Report 13031557 (Version 2)
Quarter: 2016Q4

REPORT INFORMATION
  Report Type: Spontaneous
  Country: US (occurrence: US)
  Receive Date: 20161215
  Receipt Date: 20161222
  Transmission Date: 20170207
  Serious: Yes (Hospitalization, Other)
  Sender: FDA-Public Use
  Company Number: US-PRINSTON PHARMACEUTICAL INC.-2016PRN00346

PATIENT
  Age: 64 Year
  Sex: Female
  Weight: 70.3 kg

DRUGS (14)
  1. REQUIP [Suspect]
     Active Substance: ROPINIROLE HYDROCHLORIDE
     Indication: RESTLESS LEGS SYNDROME
     Dosage: 1.5 MG, UNK
     Route: 048
     Dates: start: 2009
  2. NEUPRO [Suspect]
     Active Substance: ROTIGOTINE
     Indication: RESTLESS LEGS SYNDROME
     Dosage: UNK
     Route: 062
     Dates: start: 201606
  3. ADVAIR HFA [Concomitant]
     Active Substance: FLUTICASONE PROPIONATE\SALMETEROL XINAFOATE
  4. PRAVASTATIN. [Concomitant]
     Active Substance: PRAVASTATIN
  5. REQUIP [Suspect]
     Active Substance: ROPINIROLE HYDROCHLORIDE
     Dosage: 3 MG, UNK
     Route: 048
     Dates: start: 201601
  6. SYMBICORT [Concomitant]
     Active Substance: BUDESONIDE\FORMOTEROL FUMARATE DIHYDRATE
  7. ROPINIROLE HYDROCHLORIDE. [Suspect]
     Active Substance: ROPINIROLE HYDROCHLORIDE
     Dosage: 2 MG PER DAY
     Route: 048
     Dates: start: 201601, end: 201608
  8. ROPINIROLE HYDROCHLORIDE. [Suspect]
     Active Substance: ROPINIROLE HYDROCHLORIDE
     Indication: RESTLESS LEGS SYNDROME
     Dosage: 1.5 TO 2 MG PER DAY IN DIVIDED DOSES
     Route: 048
  9. ROPINIROLE HYDROCHLORIDE. [Suspect]
     Active Substance: ROPINIROLE HYDROCHLORIDE
     Indication: RESTLESS LEGS SYNDROME
     Dosage: 1.5 TO 2 MG PER DAY IN DIVIDED DOSES
     Route: 048
  10. ROPINIROLE HYDROCHLORIDE. [Suspect]
     Active Substance: ROPINIROLE HYDROCHLORIDE
     Dosage: 2 MG PER DAY
     Route: 048
     Dates: start: 201601, end: 201608
  11. REQUIP [Suspect]
     Active Substance: ROPINIROLE HYDROCHLORIDE
     Dosage: 0.75 MG, UNK
     Route: 048
  12. LEVOTHYROXINE. [Concomitant]
     Active Substance: LEVOTHYROXINE
  13. SPIRIVA [Concomitant]
     Active Substance: TIOTROPIUM BROMIDE MONOHYDRATE
  14. AMPHETAMINES [Concomitant]
     Active Substance: AMPHETAMINE

REACTIONS (20)
  - Pleural effusion [Unknown]
  - Thyroid disorder [Recovering/Resolving]
  - Oxygen saturation decreased [Recovering/Resolving]
  - Blood cholesterol increased [Unknown]
  - Bronchitis [Recovered/Resolved]
  - Respiratory tract infection [Recovering/Resolving]
  - Lung infection [Recovering/Resolving]
  - Lung infiltration [Unknown]
  - Dysphagia [Recovered/Resolved]
  - Dyspnoea [Recovered/Resolved]
  - Weight increased [Not Recovered/Not Resolved]
  - Cardiac failure congestive [Unknown]
  - Bronchospasm [Recovering/Resolving]
  - Pulmonary fibrosis [Recovering/Resolving]
  - Sinus congestion [Recovered/Resolved]
  - Pleural thickening [Unknown]
  - Cough [Recovering/Resolving]
  - Insomnia [Recovering/Resolving]
  - Chronic obstructive pulmonary disease [Recovering/Resolving]
  - Lung disorder [Recovering/Resolving]

NARRATIVE: CASE EVENT DATE: 2012
